FAERS Safety Report 5191862-1 (Version None)
Quarter: 2006Q4

REPORT INFORMATION
  Report Type: 
  Country: None (occurrence: None)
  Receive Date: 20061227
  Receipt Date: 20061221
  Transmission Date: 20070319
  Serious: Yes (Other)
  Sender: FDA-Public Use
  Company Number: 2006UW28336

PATIENT
  Age: 84 Year
  Sex: Female
  Weight: 52.2 kg

DRUGS (3)
  1. SEROQUEL [Suspect]
     Indication: SLEEP DISORDER
     Route: 048
  2. ARICEPT [Concomitant]
  3. ATENOLOL [Concomitant]

REACTIONS (4)
  - APHASIA [None]
  - INCONTINENCE [None]
  - MUSCULAR WEAKNESS [None]
  - TRANSIENT ISCHAEMIC ATTACK [None]
